FAERS Safety Report 5523725-3 (Version None)
Quarter: 2007Q4

REPORT INFORMATION
  Report Type: 
  Country: None (occurrence: None)
  Receive Date: 20071121
  Receipt Date: 20071115
  Transmission Date: 20080405
  Serious: Yes (Hospitalization)
  Sender: FDA-Public Use
  Company Number: US-ABBOTT-07P-163-0425069-00

PATIENT
  Sex: Female
  Weight: 102.2 kg

DRUGS (4)
  1. HUMIRA [Suspect]
     Indication: RHEUMATOID ARTHRITIS
     Dosage: LOT #/EXP NOT AVAILABLE - CONSUMER DISCARDED BOXES AND SYRINGES
     Route: 058
     Dates: start: 20030101
  2. HUMIRA [Suspect]
     Route: 058
     Dates: end: 20060101
  3. HUMIRA [Suspect]
     Dates: start: 20060101
  4. WARFARIN SODIUM [Concomitant]
     Indication: PULMONARY EMBOLISM
     Dosage: 2-5 MG DAILY
     Route: 048
     Dates: start: 20060701, end: 20070201

REACTIONS (4)
  - DRUG INEFFECTIVE [None]
  - PAIN [None]
  - PULMONARY EMBOLISM [None]
  - PYREXIA [None]
